FAERS Safety Report 10301988 (Version 1)
Quarter: 2014Q3

REPORT INFORMATION
  Report Type: Spontaneous
  Country: MX (occurrence: MX)
  Receive Date: 20140714
  Receipt Date: 20140714
  Transmission Date: 20150326
  Serious: Yes (Other)
  Sender: FDA-Public Use
  Company Number: MX-ELI_LILLY_AND_COMPANY-MX201407001465

PATIENT
  Age: 73 Year
  Sex: Female

DRUGS (2)
  1. HUMALOG [Suspect]
     Active Substance: INSULIN LISPRO
     Indication: PRODUCT USED FOR UNKNOWN INDICATION
     Dosage: 30 IU, EACH MORNING
     Route: 065
     Dates: start: 201301
  2. HUMALOG [Suspect]
     Active Substance: INSULIN LISPRO
     Dosage: 15 IU, EACH EVENING
     Route: 065
     Dates: start: 201301

REACTIONS (2)
  - Eye haemorrhage [Unknown]
  - Blindness [Unknown]
